FAERS Safety Report 6650355-2 (Version None)
Quarter: 2010Q1

REPORT INFORMATION
  Report Type: 
  Country: None (occurrence: None)
  Receive Date: 20100322
  Receipt Date: 20100309
  Transmission Date: 20100710
  Serious: Yes (Other)
  Sender: FDA-Public Use
  Company Number: 2010AL001560

PATIENT
  Age: 55 Year
  Sex: Male

DRUGS (6)
  1. METFORMIN HCL [Suspect]
     Indication: TYPE 2 DIABETES MELLITUS
  2. LISINOPRIL [Concomitant]
  3. ONGLYZA [Concomitant]
  4. LOVAZA [Concomitant]
  5. ASPIRIN [Concomitant]
  6. LIPITOR [Concomitant]

REACTIONS (1)
  - BLOOD CREATININE INCREASED [None]
